FAERS Safety Report 5272443-8 (Version None)
Quarter: 2007Q1

REPORT INFORMATION
  Report Type: 
  Country: None (occurrence: None)
  Receive Date: 20070319
  Receipt Date: 20070228
  Transmission Date: 20070707
  Serious: Yes (Other)
  Sender: FDA-Public Use
  Company Number: B0461321A

PATIENT
  Age: 52 Year
  Sex: Male

DRUGS (5)
  1. ZIAGEN [Suspect]
     Indication: HIV INFECTION
  2. LEXIVA (FORMULATION UNKNOWN) (FOSAMPRENAVIR) [Suspect]
     Indication: HIV INFECTION
  3. EMTRICITABINE (FORMULATION UNKNOWN) (EMTRICITABINE) [Suspect]
  4. LOPINAVIR + RITONAVIR (FORMULATION UNKNOWN) (LOPINAVIR + RITONAVIR) [Suspect]
  5. T-20 (FORMULATION UNKNOWN) (T-20) [Suspect]

REACTIONS (1)
  - OSTEONECROSIS [None]
